FAERS Safety Report 7640991-9 (Version None)
Quarter: 2011Q3

REPORT INFORMATION
  Report Type: 
  Country: None (occurrence: None)
  Receive Date: 20110721
  Receipt Date: 20110707
  Transmission Date: 20111222
  Serious: Yes (Other)
  Sender: FDA-Public Use
  Company Number: TCI2011A03912

PATIENT
  Sex: Male

DRUGS (2)
  1. GLYBURIDE [Concomitant]
  2. ACTOS [Suspect]
     Dosage: PER ORAL
     Route: 048
     Dates: start: 20080101, end: 20110101

REACTIONS (1)
  - BLADDER CANCER RECURRENT [None]
